FAERS Safety Report 4617903-5 (Version None)
Quarter: 2005Q1

REPORT INFORMATION
  Report Type: 
  Country: None (occurrence: None)
  Receive Date: 20050322
  Receipt Date: 20050310
  Transmission Date: 20050727
  Serious: Yes (Death, Hospitalization)
  Sender: FDA-Public Use
  Company Number: HQWYE025510MAR05

PATIENT
  Age: 47 Year
  Sex: Male

DRUGS (3)
  1. AMIODARONE HCL [Suspect]
     Dosage: 200 MG 1X PER 1 DAY
     Dates: end: 20040101
  2. VIAGRA [Concomitant]
  3. AUGMENTIN [Concomitant]

REACTIONS (4)
  - ATRIAL FIBRILLATION [None]
  - INTERNATIONAL NORMALISED RATIO INCREASED [None]
  - PULMONARY HAEMORRHAGE [None]
  - RESPIRATORY FAILURE [None]
